FAERS Safety Report 8878355 (Version 1)
Quarter: 2012Q4

REPORT INFORMATION
  Report Type: 
  Country: US (occurrence: US)
  Receive Date: 20121025
  Receipt Date: 20121025
  Transmission Date: 20130627
  Serious: Yes (Hospitalization)
  Sender: FDA-Public Use
  Company Number: US-AMGEN-USASP2012018451

PATIENT
  Age: 69 Year
  Sex: Female

DRUGS (2)
  1. ENBREL [Suspect]
     Indication: PSORIATIC ARTHROPATHY
     Dosage: 50 mg, qwk
     Route: 058
     Dates: start: 20110629, end: 201111
  2. MTX                                /00113801/ [Concomitant]
     Indication: PSORIATIC ARTHROPATHY
     Dosage: 15 mg, qwk
     Route: 048
     Dates: start: 2010

REACTIONS (1)
  - Pneumocystis jiroveci pneumonia [Unknown]
